APPROVED DRUG PRODUCT: GANIRELIX ACETATE
Active Ingredient: GANIRELIX ACETATE
Strength: 250MCG/0.5ML
Dosage Form/Route: INJECTABLE;INJECTION
Application: N021057 | Product #001 | TE Code: AP
Applicant: ORGANON USA LLC A SUB OF ORGANON AND CO
Approved: Jul 29, 1999 | RLD: Yes | RS: Yes | Type: RX